FAERS Safety Report 5601414-4 (Version None)
Quarter: 2008Q1

REPORT INFORMATION
  Report Type: 
  Country: None (occurrence: None)
  Receive Date: 20080124
  Receipt Date: 20080118
  Transmission Date: 20080703
  Serious: Yes (Death, Life-Threatening, Other)
  Sender: FDA-Public Use
  Company Number: DE-MERCK-0801DEU00030

PATIENT
  Age: 83 Year
  Sex: Female
  Weight: 68 kg

DRUGS (7)
  1. PRIMAXIN [Suspect]
     Indication: LOBAR PNEUMONIA
     Route: 042
     Dates: start: 20071114, end: 20071116
  2. TAVANIC [Suspect]
     Indication: LOBAR PNEUMONIA
     Route: 048
     Dates: start: 20071116, end: 20071119
  3. UNACID [Concomitant]
     Indication: LOBAR PNEUMONIA
     Route: 048
     Dates: start: 20071031, end: 20071108
  4. AZITHROMYCIN [Concomitant]
     Indication: LOBAR PNEUMONIA
     Route: 065
     Dates: start: 20071031, end: 20071108
  5. SODIUM PERCHLORATE [Concomitant]
     Route: 048
     Dates: start: 20071107, end: 20071108
  6. METHIMAZOLE [Concomitant]
     Route: 065
     Dates: start: 20071107, end: 20071108
  7. METRONIDAZOLE [Concomitant]
     Indication: ENTEROCOLITIS
     Route: 048
     Dates: start: 20071113, end: 20071119

REACTIONS (11)
  - BRAIN OEDEMA [None]
  - CEREBRAL HAEMORRHAGE [None]
  - COAGULATION FACTOR DECREASED [None]
  - DRUG ERUPTION [None]
  - HAEMORRHAGIC ANAEMIA [None]
  - HEPATIC ENCEPHALOPATHY [None]
  - HEPATIC FAILURE [None]
  - HEPATITIS ACUTE [None]
  - LACTIC ACIDOSIS [None]
  - RENAL FAILURE ACUTE [None]
  - THROMBOCYTOPENIA [None]
